FAERS Safety Report 17712808 (Version 1)
Quarter: 2020Q2

REPORT INFORMATION
  Report Type: Spontaneous
  Country: CN (occurrence: CN)
  Receive Date: 20200427
  Receipt Date: 20200427
  Transmission Date: 20200714
  Serious: Yes (Other)
  Sender: FDA-Public Use
  Company Number: CN-ROCHE-2588401

PATIENT
  Age: 66 Year
  Sex: Male

DRUGS (13)
  1. SINTILIMAB. [Concomitant]
     Active Substance: SINTILIMAB
     Route: 041
     Dates: start: 20190901
  2. XELODA [Suspect]
     Active Substance: CAPECITABINE
     Route: 048
     Dates: start: 20180701
  3. SINTILIMAB. [Concomitant]
     Active Substance: SINTILIMAB
     Route: 041
     Dates: start: 20191001
  4. DOCETAXEL. [Concomitant]
     Active Substance: DOCETAXEL
     Indication: ADENOCARCINOMA GASTRIC
     Route: 065
     Dates: start: 20190112, end: 20190203
  5. TEGAFUR,GIMERACIL AND OTERACIL POTASSIUM [Concomitant]
     Active Substance: GIMERACIL\OTERACIL\TEGAFUR
     Indication: ADENOCARCINOMA GASTRIC
  6. XELODA [Suspect]
     Active Substance: CAPECITABINE
     Indication: ADENOCARCINOMA GASTRIC
     Route: 048
     Dates: start: 20180124, end: 201807
  7. APATINIB [Concomitant]
     Active Substance: APATINIB
     Indication: ADENOCARCINOMA GASTRIC
     Route: 041
     Dates: start: 20190306, end: 20190604
  8. SINTILIMAB. [Concomitant]
     Active Substance: SINTILIMAB
     Route: 041
     Dates: start: 20190814, end: 20190925
  9. XELODA [Suspect]
     Active Substance: CAPECITABINE
     Route: 048
     Dates: start: 20190112, end: 20190203
  10. OXALIPLATIN. [Concomitant]
     Active Substance: OXALIPLATIN
     Indication: ADENOCARCINOMA GASTRIC
     Route: 065
     Dates: start: 20180124, end: 201807
  11. OXALIPLATIN. [Concomitant]
     Active Substance: OXALIPLATIN
     Route: 065
     Dates: start: 20190112, end: 20190203
  12. SINTILIMAB. [Concomitant]
     Active Substance: SINTILIMAB
     Indication: ADENOCARCINOMA GASTRIC
     Route: 041
     Dates: start: 20190306, end: 20190604
  13. APATINIB [Concomitant]
     Active Substance: APATINIB
     Route: 065
     Dates: start: 20190901

REACTIONS (2)
  - Bone marrow failure [Unknown]
  - Hepatic function abnormal [Recovering/Resolving]
